FAERS Safety Report 8999658 (Version 2)
Quarter: 2013Q1

REPORT INFORMATION
  Report Type: Spontaneous
  Country: ES (occurrence: ES)
  Receive Date: 20130102
  Receipt Date: 20130118
  Transmission Date: 20140127
  Serious: Yes (Hospitalization, Other)
  Sender: FDA-Public Use
  Company Number: JP-ASTRAZENECA-2012SE96353

PATIENT
  Age: 22 Year
  Sex: Male

DRUGS (13)
  1. VALSARTAN [Suspect]
     Indication: HYPERTENSION
     Route: 048
  2. PARAPRES [Suspect]
     Indication: HYPERTENSION
     Dosage: CANDESARTAN CILEXETIL 16 MG/HYDROCHLOROTHIAZIDE 12.5 MG
     Route: 048
  3. QUINAPRIL [Suspect]
     Indication: HYPERTENSION
     Route: 065
  4. QUINAPRIL [Suspect]
     Indication: HYPERTENSION
     Route: 065
  5. MYCOPHENOLATE MOFETIL [Concomitant]
     Route: 065
  6. TACROLIMUS [Concomitant]
     Route: 065
  7. PREDNISONE [Concomitant]
     Route: 065
  8. METHYLPREDNISOLONE [Concomitant]
     Route: 042
  9. RITUXIMAB [Concomitant]
     Route: 065
  10. CALCIUM [Concomitant]
     Indication: CALCIUM DEFICIENCY
     Route: 065
  11. CALCITRIOL [Concomitant]
     Indication: VITAMIN D DEFICIENCY
     Route: 065
     Dates: end: 200906
  12. 25-HYDROXY-VITAMIN D3 [Concomitant]
     Route: 065
     Dates: start: 200906
  13. PARICALCITOL [Concomitant]
     Route: 065

REACTIONS (1)
  - Bartter^s syndrome [Unknown]
